FAERS Safety Report 4654656-9 (Version None)
Quarter: 2005Q2

REPORT INFORMATION
  Report Type: 
  Country: None (occurrence: None)
  Receive Date: 20050506
  Receipt Date: 20050425
  Transmission Date: 20051028
  Serious: Yes (Other)
  Sender: FDA-Public Use
  Company Number: US-BRISTOL-MYERS SQUIBB COMPANY-12945499

PATIENT
  Age: 80 Year
  Sex: Female
  Weight: 70 kg

DRUGS (3)
  1. COUMADIN [Suspect]
     Indication: MYOCARDIAL INFARCTION
     Dates: start: 20010101
  2. KLOR-CON [Concomitant]
  3. COREG [Concomitant]

REACTIONS (2)
  - ANEURYSM [None]
  - PRURITUS [None]
